FAERS Safety Report 10239273 (Version 4)
Quarter: 2015Q1

REPORT INFORMATION
  Report Type: Spontaneous
  Country: BR (occurrence: BR)
  Receive Date: 20140616
  Receipt Date: 20150331
  Transmission Date: 20150720
  Serious: Yes (Hospitalization, Other)
  Sender: FDA-Public Use
  Company Number: BR-PFIZER INC-2014151595

PATIENT
  Age: 36 Year
  Sex: Female
  Weight: 65 kg

DRUGS (5)
  1. FRAGMIN [Suspect]
     Active Substance: DALTEPARIN SODIUM
     Indication: HYPERCOAGULATION
     Dosage: UNK
     Dates: start: 20140507
  2. PREMARIN [Suspect]
     Active Substance: ESTROGENS, CONJUGATED
     Indication: ASSISTED FERTILISATION
     Dosage: AT 1.25 MG, PER DAY (2 TABLETS OF 0.625MG PER DAY)
     Dates: start: 20140508, end: 20140619
  3. NATELE [Concomitant]
     Active Substance: VITAMINS
     Indication: VITAMIN SUPPLEMENTATION
     Dosage: UNK
  4. FOLIC ACID. [Concomitant]
     Active Substance: FOLIC ACID
     Indication: PREGNANCY
     Dosage: UNK
     Dates: start: 2014, end: 20140621
  5. PREMARIN [Suspect]
     Active Substance: ESTROGENS, CONJUGATED
     Indication: HYPERCOAGULATION

REACTIONS (4)
  - Premature separation of placenta [Unknown]
  - Nausea [Unknown]
  - Abortion spontaneous [Unknown]
  - Haemorrhage in pregnancy [Unknown]

NARRATIVE: CASE EVENT DATE: 2014
